FAERS Safety Report 7255145-8 (Version None)
Quarter: 2011Q1

REPORT INFORMATION
  Report Type: 
  Country: None (occurrence: None)
  Receive Date: 20110129
  Receipt Date: 20100203
  Transmission Date: 20110831
  Serious: No
  Sender: FDA-Public Use
  Company Number: US-ABBOTT-10P-163-0624098-00

PATIENT
  Sex: Female

DRUGS (2)
  1. HUMIRA [Suspect]
     Dates: start: 20081101
  2. HUMIRA [Suspect]
     Indication: CROHN'S DISEASE
     Dates: start: 20080703, end: 20081101

REACTIONS (1)
  - DRUG INEFFECTIVE [None]
